FAERS Safety Report 25124516 (Version 1)
Quarter: 2025Q1

REPORT INFORMATION
  Report Type: Report from Study
  Country: US (occurrence: US)
  Receive Date: 20250326
  Receipt Date: 20250326
  Transmission Date: 20250408
  Serious: Yes (Hospitalization, Other)
  Sender: SYNDAX
  Company Number: US-SYNDAX PHARMACEUTICALS, INC.-2025US000273

PATIENT
  Sex: Male
  Weight: 87.528 kg

DRUGS (10)
  1. REVUFORJ [Suspect]
     Active Substance: REVUMENIB CITRATE
     Indication: Product used for unknown indication
     Dosage: 110 MILLIGRAM, BID
     Route: 048
  2. REVUFORJ [Suspect]
     Active Substance: REVUMENIB CITRATE
     Dosage: 160 MILLIGRAM, BID
     Route: 048
  3. DECADRON [Concomitant]
     Active Substance: DEXAMETHASONE
     Indication: Product used for unknown indication
  4. MICONAZOLE NITRATE [Concomitant]
     Active Substance: MICONAZOLE NITRATE
     Indication: Product used for unknown indication
  5. MULTIVITAMIN                       /00097801/ [Concomitant]
     Indication: Product used for unknown indication
  6. NEULASTA [Concomitant]
     Active Substance: PEGFILGRASTIM
     Indication: Product used for unknown indication
  7. SODIUM CHLORIDE [Concomitant]
     Active Substance: SODIUM CHLORIDE
     Indication: Product used for unknown indication
  8. TYLENOL [Concomitant]
     Active Substance: ACETAMINOPHEN
     Indication: Product used for unknown indication
  9. VALTREX [Concomitant]
     Active Substance: VALACYCLOVIR HYDROCHLORIDE
     Indication: Product used for unknown indication
  10. VISINE                             /00256502/ [Concomitant]
     Indication: Product used for unknown indication

REACTIONS (1)
  - Cerebral haemorrhage [Unknown]
